FAERS Safety Report 14733008 (Version 1)
Quarter: 2018Q2

REPORT INFORMATION
  Report Type: Spontaneous
  Country: US (occurrence: US)
  Receive Date: 20180403
  Receipt Date: 20180403
  Transmission Date: 20180711
  Serious: Yes (Hospitalization)
  Sender: FDA-Public Use
  Company Number: None

PATIENT
  Age: 5 Year
  Sex: Male

DRUGS (17)
  1. CALCITROL [Concomitant]
     Active Substance: CALCITRIOL
  2. PENICILLIN VK [Concomitant]
     Active Substance: PENICILLIN V POTASSIUM
  3. NUTROPIN [Suspect]
     Active Substance: SOMATROPIN
     Indication: CHRONIC KIDNEY DISEASE
     Route: 058
     Dates: start: 20171207
  4. SODIUM CHLOR [Concomitant]
     Active Substance: SODIUM CHLORIDE
  5. CYTRA-2 [Concomitant]
     Active Substance: CITRIC ACID MONOHYDRATE\TRISODIUM CITRATE DIHYDRATE
  6. FERROUS SULF [Concomitant]
     Active Substance: FERROUS SULFATE
  7. LISINOPRIL. [Concomitant]
     Active Substance: LISINOPRIL
  8. ZANTAC [Concomitant]
     Active Substance: RANITIDINE HYDROCHLORIDE
  9. PREVACID [Concomitant]
     Active Substance: LANSOPRAZOLE
  10. VITAMIN D3 [Concomitant]
     Active Substance: CHOLECALCIFEROL
  11. CHOLESTYRAM [Concomitant]
     Active Substance: CHOLESTYRAMINE
  12. AMLODIPINE [Concomitant]
     Active Substance: AMLODIPINE BESYLATE
  13. ASPIRIN. [Concomitant]
     Active Substance: ASPIRIN
  14. DOXAZOSN [Concomitant]
  15. WARFARIN [Concomitant]
     Active Substance: WARFARIN
  16. SOLIRIS [Concomitant]
     Active Substance: ECULIZUMAB
  17. LOSARTAN POT [Concomitant]
     Active Substance: LOSARTAN POTASSIUM

REACTIONS (2)
  - Therapy cessation [None]
  - Hospitalisation [None]

NARRATIVE: CASE EVENT DATE: 2018
